FAERS Safety Report 19609818 (Version 1)
Quarter: 2021Q3

REPORT INFORMATION
  Report Type: Report from Study
  Country: IT (occurrence: IT)
  Receive Date: 20210726
  Receipt Date: 20210726
  Transmission Date: 20211014
  Serious: Yes (Other)
  Sender: FDA-Public Use
  Company Number: IT-PFIZER INC-2021654433

PATIENT

DRUGS (2)
  1. METHYLPREDNISOLONE. [Suspect]
     Active Substance: METHYLPREDNISOLONE
     Dosage: UNK
  2. KETOPROFEN. [Interacting]
     Active Substance: KETOPROFEN
     Dosage: UNK

REACTIONS (2)
  - Drug interaction [Unknown]
  - Gastrointestinal haemorrhage [Unknown]
